FAERS Safety Report 9729474 (Version 3)
Quarter: 2015Q3

REPORT INFORMATION
  Report Type: Spontaneous
  Country: US (occurrence: US)
  Receive Date: 20131204
  Receipt Date: 20150804
  Transmission Date: 20151125
  Serious: No
  Sender: FDA-Public Use
  Company Number: US-GILEAD-2009-0021337

PATIENT
  Age: 66 Year
  Sex: Female
  Weight: 84.37 kg

DRUGS (24)
  1. ZELNORM [Concomitant]
     Active Substance: TEGASEROD MALEATE
  2. COUMADIN [Concomitant]
     Active Substance: WARFARIN SODIUM
  3. PREMARIN [Concomitant]
     Active Substance: ESTROGENS, CONJUGATED
  4. DIAZEPAM. [Concomitant]
     Active Substance: DIAZEPAM
  5. PROTONIX [Concomitant]
     Active Substance: PANTOPRAZOLE SODIUM
  6. ZYRTEC [Concomitant]
     Active Substance: CETIRIZINE HYDROCHLORIDE
  7. HYDROCHLOROTHIAZIDE/LOSARTAN POTASSIUM [Concomitant]
  8. CELEXA [Concomitant]
     Active Substance: CITALOPRAM HYDROBROMIDE
  9. PROZAC [Concomitant]
     Active Substance: FLUOXETINE HYDROCHLORIDE
  10. ERGOCALCIFEROL/NICOTINAMIDE/RETINOL/ASCORBIC ACID/FOLIC ACID/PANTHENOL/RIBOFLAVIN/THIAMINE HYDROCHLO [Concomitant]
  11. LOPRESSOR [Concomitant]
     Active Substance: METOPROLOL TARTRATE
  12. TRAMADOL. [Concomitant]
     Active Substance: TRAMADOL
  13. MIRAPEX [Concomitant]
     Active Substance: PRAMIPEXOLE DIHYDROCHLORIDE
  14. TOPROL XL [Concomitant]
     Active Substance: METOPROLOL SUCCINATE
  15. ZANTAC [Concomitant]
     Active Substance: RANITIDINE HYDROCHLORIDE
  16. POTASSIUM CHLORIDE. [Concomitant]
     Active Substance: POTASSIUM CHLORIDE
  17. LOFIBRA [Concomitant]
     Active Substance: FENOFIBRATE
  18. LASIX [Concomitant]
     Active Substance: FUROSEMIDE
  19. DEMADEX [Concomitant]
     Active Substance: TORSEMIDE
  20. ASPIRIN. [Concomitant]
     Active Substance: ASPIRIN
  21. FERROUS SULFATE [Concomitant]
     Active Substance: FERROUS SULFATE\FERROUS SULFATE, DRIED
  22. LETAIRIS [Suspect]
     Active Substance: AMBRISENTAN
     Indication: PULMONARY ARTERIAL HYPERTENSION
     Route: 048
     Dates: start: 20080801
  23. REVATIO [Concomitant]
     Active Substance: SILDENAFIL CITRATE
  24. COZAAR [Concomitant]
     Active Substance: LOSARTAN POTASSIUM

REACTIONS (2)
  - Dizziness [Unknown]
  - Cardiac function test abnormal [Unknown]
